FAERS Safety Report 19567412 (Version 1)
Quarter: 2021Q3

REPORT INFORMATION
  Report Type: Spontaneous
  Country: US (occurrence: US)
  Receive Date: 20210715
  Receipt Date: 20210715
  Transmission Date: 20211014
  Serious: No
  Sender: FDA-Public Use
  Company Number: US-GLENMARK PHARMACEUTICALS-2020GMK049695

PATIENT

DRUGS (1)
  1. NORGESTIMATE AND ETHINYL ESTRADIOL TABLETS USP, 0.18 MG/0.035 MG, 0.21 [Suspect]
     Active Substance: ETHINYL ESTRADIOL\NORGESTIMATE
     Indication: ORAL CONTRACEPTION
     Dosage: UNK, OD
     Route: 048
     Dates: start: 202007

REACTIONS (2)
  - Product dose omission issue [Unknown]
  - No adverse event [Unknown]

NARRATIVE: CASE EVENT DATE: 20200910
